FAERS Safety Report 5695181-6 (Version None)
Quarter: 2008Q2

REPORT INFORMATION
  Report Type: 
  Country: None (occurrence: None)
  Receive Date: 20080404
  Receipt Date: 20080325
  Transmission Date: 20081010
  Serious: Yes (Other)
  Sender: FDA-Public Use
  Company Number: JP-PFIZER INC-2008027203

PATIENT
  Age: 49 Year
  Sex: Male

DRUGS (3)
  1. GABAPEN [Suspect]
     Indication: PARTIAL SEIZURES
     Dosage: DAILY DOSE:800MG
     Route: 048
     Dates: start: 20061215, end: 20080316
  2. TEGRETOL [Suspect]
     Indication: PARTIAL SEIZURES
     Dosage: DAILY DOSE:1350MG
     Route: 048
  3. PHENYTOIN SODIUM [Concomitant]
     Route: 048

REACTIONS (3)
  - EPILEPSY [None]
  - FALL [None]
  - INJURY [None]
